FAERS Safety Report 20044302 (Version 1)
Quarter: 2021Q4

REPORT INFORMATION
  Report Type: Spontaneous
  Country: FR (occurrence: FR)
  Receive Date: 20211108
  Receipt Date: 20211108
  Transmission Date: 20220303
  Serious: Yes (Hospitalization)
  Sender: FDA-Public Use
  Company Number: FR-ANIPHARMA-2021-FR-000226

PATIENT
  Age: 90 Year
  Sex: Male
  Weight: 58 kg

DRUGS (9)
  1. CANDESARTAN CILEXETIL [Suspect]
     Active Substance: CANDESARTAN CILEXETIL
     Indication: Hypertension
     Dosage: 16 MG QAM
     Route: 048
     Dates: end: 20210903
  2. AMIODARONE [Suspect]
     Active Substance: AMIODARONE
     Dosage: 1 DF DAILY
     Route: 048
  3. AUGMENTIN [Suspect]
     Active Substance: AMOXICILLIN\CLAVULANATE POTASSIUM
     Dosage: 1 DF (1G/125MG
     Route: 048
  4. TRAMADOL HYDROCHLORIDE [Suspect]
     Active Substance: TRAMADOL HYDROCHLORIDE
     Route: 048
  5. MELATONIN [Suspect]
     Active Substance: MELATONIN
     Route: 048
  6. HYDROCHLOROTHIAZIDE [Suspect]
     Active Substance: HYDROCHLOROTHIAZIDE
     Route: 048
     Dates: end: 20210907
  7. PRAVASTATIN SODIUM [Suspect]
     Active Substance: PRAVASTATIN SODIUM
     Dosage: 20 MG IN THE EVENING
     Dates: end: 20210903
  8. RISPERDAL [Suspect]
     Active Substance: RISPERIDONE
     Route: 048
     Dates: end: 20210922
  9. XARELTO [Suspect]
     Active Substance: RIVAROXABAN
     Route: 048

REACTIONS (4)
  - Hypotension [Recovered/Resolved]
  - Acute kidney injury [Unknown]
  - Injury [Recovered/Resolved]
  - Fall [Recovered/Resolved]

NARRATIVE: CASE EVENT DATE: 20210903
